FAERS Safety Report 25497514 (Version 1)
Quarter: 2025Q3

REPORT INFORMATION
  Report Type: Spontaneous
  Country: GB (occurrence: GB)
  Receive Date: 20250701
  Receipt Date: 20250701
  Transmission Date: 20251021
  Serious: Yes (Hospitalization, Other)
  Sender: CHEPLAPHARM
  Company Number: GB-CHEPLA-2025007931

PATIENT
  Age: 7 Decade
  Sex: Male

DRUGS (4)
  1. OLANZAPINE [Suspect]
     Active Substance: OLANZAPINE
     Indication: Bipolar disorder
     Route: 048
  2. ZUCLOPENTHIXOL DECANOATE [Suspect]
     Active Substance: ZUCLOPENTHIXOL DECANOATE
     Indication: Mania
     Dosage: -43 DAY WHEN ZUCLOPENTHIXOL DECANOATE WAS STABILIZED
  3. ZUCLOPENTHIXOL DECANOATE [Suspect]
     Active Substance: ZUCLOPENTHIXOL DECANOATE
     Indication: Mania
     Dosage: 28 DAY WHEN ZUCLOPENTHIXOL DECANOATE WAS STABILIZED
  4. VALPROIC ACID [Suspect]
     Active Substance: VALPROIC ACID
     Indication: Bipolar disorder

REACTIONS (8)
  - Dysphagia [Recovering/Resolving]
  - Infectious pleural effusion [Unknown]
  - Pneumonia aspiration [Unknown]
  - Pharyngeal haemorrhage [Unknown]
  - Mental disorder [Recovering/Resolving]
  - Injury [Unknown]
  - Lung consolidation [Unknown]
  - Treatment noncompliance [Unknown]
